FAERS Safety Report 4471571-4 (Version None)
Quarter: 2004Q4

REPORT INFORMATION
  Report Type: 
  Country: None (occurrence: None)
  Receive Date: 20041012
  Receipt Date: 20041011
  Transmission Date: 20050328
  Serious: Yes (Hospitalization)
  Sender: FDA-Public Use
  Company Number: US-GLAXOSMITHKLINE-A0529341A

PATIENT

DRUGS (1)
  1. LAMICTAL [Suspect]

REACTIONS (2)
  - ALCOHOL POISONING [None]
  - OVERDOSE [None]
